FAERS Safety Report 4889128-X (Version None)
Quarter: 2005Q4

REPORT INFORMATION
  Report Type: 
  Country: None (occurrence: None)
  Receive Date: 20051215
  Receipt Date: 20051007
  Transmission Date: 20060501
  Serious: Yes (Other)
  Sender: FDA-Public Use
  Company Number: 2005140718

PATIENT
  Sex: Male

DRUGS (2)
  1. BEXTRA [Suspect]
     Indication: BACK DISORDER
     Dosage: 10 MG (10 MG, 1 IN 1 D)
     Dates: start: 20020101, end: 20031009
  2. VIOXX [Suspect]
     Indication: BACK DISORDER
     Dosage: 25 MG (25 MG, 1 IN 1 D)
     Dates: start: 20020101, end: 20031009

REACTIONS (1)
  - MYOCARDIAL INFARCTION [None]
